FAERS Safety Report 6766073-6 (Version None)
Quarter: 2010Q2

REPORT INFORMATION
  Report Type: 
  Country: None (occurrence: None)
  Receive Date: 20100611
  Receipt Date: 20100604
  Transmission Date: 20101027
  Serious: Yes (Other)
  Sender: FDA-Public Use
  Company Number: B0659980A

PATIENT
  Sex: Female

DRUGS (3)
  1. AVANDAMET [Suspect]
     Indication: DRUG USE FOR UNKNOWN INDICATION
     Dosage: 1G UNKNOWN
     Route: 065
     Dates: start: 20091130, end: 20100222
  2. RAMIPRIL [Concomitant]
  3. GLIMEPIRIDE [Concomitant]

REACTIONS (3)
  - ERYTHROPENIA [None]
  - LEUKOPENIA [None]
  - THROMBOCYTOPENIA [None]
